FAERS Safety Report 14876315 (Version 2)
Quarter: 2018Q2

REPORT INFORMATION
  Report Type: Spontaneous
  Country: TR (occurrence: TR)
  Receive Date: 20180510
  Receipt Date: 20180618
  Transmission Date: 20180711
  Serious: Yes (Other)
  Sender: FDA-Public Use
  Company Number: TR-PFIZER INC-2018187142

PATIENT
  Age: 45 Year
  Sex: Female

DRUGS (4)
  1. CRIZOTINIB [Suspect]
     Active Substance: CRIZOTINIB
     Dosage: UNK
     Dates: start: 201801
  2. ZOLEDRONIC ACID [Concomitant]
     Active Substance: ZOLEDRONIC ACID
     Indication: METASTASES TO BONE
     Dosage: UNK
  3. CRIZOTINIB [Suspect]
     Active Substance: CRIZOTINIB
     Indication: LUNG ADENOCARCINOMA STAGE IV
     Dosage: 250 MG, 2X/DAY
     Dates: start: 20160501
  4. CRIZOTINIB [Suspect]
     Active Substance: CRIZOTINIB
     Dosage: UNK
     Dates: start: 201612

REACTIONS (13)
  - Liver abscess [Unknown]
  - Iridocyclitis [Unknown]
  - Ocular toxicity [Unknown]
  - Chest pain [Unknown]
  - Intra-abdominal fluid collection [Unknown]
  - Eye discharge [Unknown]
  - Neoplasm progression [Unknown]
  - Ocular hyperaemia [Unknown]
  - Conjunctivitis [Unknown]
  - Renal abscess [Unknown]
  - Photopsia [Unknown]
  - Gastrointestinal ulcer [Unknown]
  - Asthenia [Unknown]

NARRATIVE: CASE EVENT DATE: 201605
